FAERS Safety Report 18344067 (Version 1)
Quarter: 2020Q4

REPORT INFORMATION
  Report Type: Spontaneous
  Country: US (occurrence: US)
  Receive Date: 20201002
  Receipt Date: 20201002
  Transmission Date: 20210114
  Serious: No
  Sender: FDA-Public Use
  Company Number: None

PATIENT
  Age: 42 Year
  Sex: Male

DRUGS (1)
  1. DESCOVY [Suspect]
     Active Substance: EMTRICITABINE\TENOFOVIR ALAFENAMIDE FUMARATE
     Indication: HIGH RISK SEXUAL BEHAVIOUR
     Dosage: ?          OTHER DOSE:200/25;?
     Route: 048
     Dates: start: 201908

REACTIONS (2)
  - Seizure [None]
  - Condition aggravated [None]

NARRATIVE: CASE EVENT DATE: 20190815
